FAERS Safety Report 22653642 (Version 1)
Quarter: 2023Q2

REPORT INFORMATION
  Report Type: Report from Study
  Country: ZA (occurrence: ZA)
  Receive Date: 20230629
  Receipt Date: 20230629
  Transmission Date: 20230721
  Serious: Yes (Hospitalization)
  Sender: FDA-Public Use
  Company Number: ZA-002147023-NVSC2023ZA126056

PATIENT
  Age: 38 Year
  Sex: Female

DRUGS (2)
  1. OFATUMUMAB [Suspect]
     Active Substance: OFATUMUMAB
     Indication: Relapsing-remitting multiple sclerosis
     Dosage: 20 MG, QW
     Route: 058
     Dates: start: 20230530
  2. OFATUMUMAB [Suspect]
     Active Substance: OFATUMUMAB
     Dosage: UNK
     Route: 058
     Dates: start: 20230605

REACTIONS (12)
  - Syncope [Recovering/Resolving]
  - Eye movement disorder [Recovering/Resolving]
  - Tremor [Recovering/Resolving]
  - Balance disorder [Recovering/Resolving]
  - Head discomfort [Unknown]
  - Memory impairment [Unknown]
  - Headache [Unknown]
  - Rhinitis [Unknown]
  - Rhinorrhoea [Recovering/Resolving]
  - Feeling abnormal [Unknown]
  - Fatigue [Recovering/Resolving]
  - Back pain [Unknown]

NARRATIVE: CASE EVENT DATE: 20230530
